FAERS Safety Report 4798352-6 (Version None)
Quarter: 2005Q4

REPORT INFORMATION
  Report Type: 
  Country: None (occurrence: None)
  Receive Date: 20051014
  Receipt Date: 20030925
  Transmission Date: 20060501
  Serious: Yes (Death, Hospitalization)
  Sender: FDA-Public Use
  Company Number: IT-GILEAD-2003-06113

PATIENT
  Age: 17 Year
  Sex: Female

DRUGS (6)
  1. VIREAD [Suspect]
     Indication: HIV INFECTION
     Dates: start: 20020201, end: 20021201
  2. STAVUDINE [Suspect]
     Indication: HIV INFECTION
     Dates: start: 20020801, end: 20021201
  3. DIDANOSINE [Suspect]
     Indication: HIV INFECTION
     Dates: start: 20020801, end: 20021201
  4. AMPRENAVIR [Suspect]
     Indication: HIV INFECTION
     Dates: start: 20020201, end: 20021201
  5. PENTAMIDINE [Concomitant]
     Indication: PROPHYLAXIS
     Dates: start: 19960101, end: 20020101
  6. CIPROFLOXACIN [Concomitant]
     Indication: OTITIS MEDIA ACUTE
     Dates: start: 20021201, end: 20021201

REACTIONS (12)
  - COUGH [None]
  - DYSPNOEA [None]
  - GUILLAIN-BARRE SYNDROME [None]
  - HEPATOTOXICITY [None]
  - HYPOTENSION [None]
  - LACTIC ACIDOSIS [None]
  - LIPODYSTROPHY ACQUIRED [None]
  - LYMPHADENOPATHY [None]
  - MUSCULAR WEAKNESS [None]
  - ORAL CANDIDIASIS [None]
  - OTITIS MEDIA [None]
  - RESPIRATORY FAILURE [None]
